FAERS Safety Report 4323914-X (Version None)
Quarter: 2004Q1

REPORT INFORMATION
  Report Type: 
  Country: None (occurrence: None)
  Receive Date: 20040326
  Receipt Date: 20031027
  Transmission Date: 20041129
  Serious: No
  Sender: FDA-Public Use
  Company Number: US-GLAXOSMITHKLINE-A0431753A

PATIENT
  Age: 60 Year
  Sex: Female
  Weight: 75 kg

DRUGS (6)
  1. ADVAIR DISKUS 100/50 [Suspect]
     Indication: ASTHMA
     Dosage: 1PUFF TWICE PER DAY
     Route: 055
  2. SYNTHROID [Concomitant]
  3. ESTRACE [Concomitant]
  4. LIPITOR [Concomitant]
  5. MULTI-VITAMIN [Concomitant]
  6. PRILOSEC [Concomitant]

REACTIONS (5)
  - DYSPHONIA [None]
  - HOARSENESS [None]
  - OESOPHAGEAL CANDIDIASIS [None]
  - ORAL CANDIDIASIS [None]
  - RESPIRATORY MONILIASIS [None]
